FAERS Safety Report 7718805-8 (Version None)
Quarter: 2011Q3

REPORT INFORMATION
  Report Type: 
  Country: None (occurrence: None)
  Receive Date: 20110830
  Receipt Date: 20110824
  Transmission Date: 20111222
  Serious: Yes (Hospitalization)
  Sender: FDA-Public Use
  Company Number: AT-ASTRAZENECA-2011SE50814

PATIENT
  Age: 24 Year
  Sex: Male

DRUGS (1)
  1. SEROQUEL [Suspect]
     Indication: INTENTIONAL OVERDOSE
     Dosage: 200 MG,  60 DOSAGE FORM ONCE
     Route: 048
     Dates: start: 20110408, end: 20110408

REACTIONS (3)
  - TOXICITY TO VARIOUS AGENTS [None]
  - SINUS TACHYCARDIA [None]
  - SOMNOLENCE [None]
